FAERS Safety Report 6565464-6 (Version None)
Quarter: 2010Q1

REPORT INFORMATION
  Report Type: 
  Country: None (occurrence: None)
  Receive Date: 20100201
  Receipt Date: 20100120
  Transmission Date: 20100710
  Serious: No
  Sender: FDA-Public Use
  Company Number: US-B.I. PHARMACEUTICALS,INC./RIDGEFIELD-2010-BP-00834BP

PATIENT
  Age: 62 Year
  Sex: Female

DRUGS (8)
  1. SPIRIVA [Suspect]
     Indication: CHRONIC OBSTRUCTIVE PULMONARY DISEASE
     Dosage: 18 MCG
     Route: 055
     Dates: start: 20090801, end: 20090801
  2. ALBUTEROL SULFATE AUTOHALER [Concomitant]
     Indication: ASTHMA
  3. XOPENEX [Concomitant]
     Indication: ASTHMA
  4. LITTEREL [Concomitant]
     Indication: HYPERTENSION
     Route: 048
  5. MELOXICAM [Concomitant]
     Indication: ARTHRITIS
     Route: 048
     Dates: start: 20081001
  6. CYMBALTA [Concomitant]
     Indication: MENTAL DISORDER
     Route: 048
  7. SEROQUEL [Concomitant]
     Indication: MENTAL DISORDER
     Route: 048
  8. DAVALPROEX SODIUM [Concomitant]
     Indication: MENTAL DISORDER
     Route: 048

REACTIONS (1)
  - OROPHARYNGEAL PAIN [None]
